FAERS Safety Report 5778314-2 (Version None)
Quarter: 2008Q2

REPORT INFORMATION
  Report Type: 
  Country: None (occurrence: None)
  Receive Date: 20080619
  Receipt Date: 20080616
  Transmission Date: 20081010
  Serious: Yes (Other)
  Sender: FDA-Public Use
  Company Number: GB-ROCHE-570664

PATIENT
  Sex: Female
  Weight: 97.5 kg

DRUGS (11)
  1. ORLISTAT [Suspect]
     Indication: OBESITY
     Route: 048
     Dates: start: 20071023
  2. ORLISTAT [Suspect]
     Route: 048
     Dates: start: 20080609
  3. METFORMIN [Concomitant]
     Route: 048
     Dates: start: 20030101
  4. VALLERGAN [Concomitant]
     Indication: PSORIASIS
     Route: 048
     Dates: start: 20000101
  5. ACETAMINOPHEN W/ CODEINE [Concomitant]
     Indication: ANALGESIA
     Route: 048
  6. ACETAMINOPHEN W/ CODEINE [Concomitant]
     Route: 048
  7. ROSIGLITAZONE [Concomitant]
     Route: 048
     Dates: start: 20060101
  8. GLICLAZIDE [Concomitant]
     Route: 048
     Dates: start: 20070601
  9. CORACTEN [Concomitant]
     Indication: HYPERTENSION
     Dosage: REPORTED AS CORACTEN XL
     Route: 048
     Dates: start: 20070601
  10. AMITRIPTYLINE HCL [Concomitant]
     Dosage: PRESCRIBED FOR NEUROPATHY ASSOCIATED WITH TYPE II DIABETES MELLITUS.
     Route: 048
     Dates: start: 20060101
  11. UNSPECIFIED DRUG [Concomitant]
     Dosage: DRUG WAS CONTINUING IN PREVIOUS REPORT, NOT MENTIONED IN THIS REPORT.
     Route: 048
     Dates: start: 20070601

REACTIONS (2)
  - MYALGIA [None]
  - TRANSIENT ISCHAEMIC ATTACK [None]
